FAERS Safety Report 8773132 (Version 1)
Quarter: 2012Q4

REPORT INFORMATION
  Report Type: 
  Country: GB (occurrence: GB)
  Receive Date: 20120907
  Receipt Date: 20120907
  Transmission Date: 20130627
  Serious: Yes (Hospitalization)
  Sender: FDA-Public Use
  Company Number: PHHY2012GB077213

PATIENT
  Age: 90 Year
  Sex: Female
  Weight: 69 kg

DRUGS (8)
  1. RANIBIZUMAB [Suspect]
     Indication: AGE-RELATED MACULAR DEGENERATION
     Dosage: 0.5 mg, UNK
     Dates: start: 20110630
  2. RANIBIZUMAB [Suspect]
     Dosage: 0.5 mg, UNK
     Dates: start: 20120802
  3. WARFARIN [Suspect]
     Indication: ATRIAL FIBRILLATION
     Dates: start: 2008
  4. RAMIPRIL [Concomitant]
     Indication: HYPERTENSION
     Dates: start: 2008
  5. CARVEDILOL [Concomitant]
     Indication: HYPERTENSION
     Dates: start: 2008
  6. FUROSEMIDE [Concomitant]
     Indication: CARDIAC FAILURE
     Dates: start: 2010
  7. SPIRONOLACTONE [Concomitant]
     Indication: CARDIAC FAILURE
     Dates: start: 2010
  8. OMEPRAZOLE [Concomitant]
     Indication: ANTACID THERAPY
     Dates: start: 2009

REACTIONS (7)
  - Diverticulum [Unknown]
  - Microcytic anaemia [Recovering/Resolving]
  - Haemoglobin decreased [Unknown]
  - Melaena [Unknown]
  - Concomitant disease progression [Unknown]
  - Atrial fibrillation [Unknown]
  - Chest pain [Recovering/Resolving]
